FAERS Safety Report 11825812 (Version 1)
Quarter: 2015Q4

REPORT INFORMATION
  Report Type: Spontaneous
  Country: US (occurrence: None)
  Receive Date: 20151210
  Receipt Date: 20151210
  Transmission Date: 20160305
  Serious: No
  Sender: FDA-Public Use
  Company Number: None

PATIENT
  Age: 51 Year
  Sex: Female
  Weight: 70 kg

DRUGS (10)
  1. PANTOPRAZOLE SODIUM. [Concomitant]
     Active Substance: PANTOPRAZOLE SODIUM
  2. MYFORTIC [Concomitant]
     Active Substance: MYCOPHENOLATE SODIUM
  3. DAPSONE. [Concomitant]
     Active Substance: DAPSONE
  4. ZETIA [Concomitant]
     Active Substance: EZETIMIBE
  5. FOLATE [Concomitant]
     Active Substance: FOLATE SODIUM
  6. TACROLIMUS 1MG [Suspect]
     Active Substance: TACROLIMUS
     Route: 048
  7. PREDNISONE. [Concomitant]
     Active Substance: PREDNISONE
  8. CLONIDINE. [Concomitant]
     Active Substance: CLONIDINE
  9. CRESTOR [Concomitant]
     Active Substance: ROSUVASTATIN CALCIUM
  10. SODIUM BICARB [Concomitant]

REACTIONS (2)
  - Drug level increased [None]
  - Drug interaction [None]

NARRATIVE: CASE EVENT DATE: 20151117
